FAERS Safety Report 13989425 (Version 1)
Quarter: 2017Q3

REPORT INFORMATION
  Report Type: Spontaneous
  Country: CA (occurrence: CA)
  Receive Date: 20170920
  Receipt Date: 20170920
  Transmission Date: 20171128
  Serious: Yes (Disabling, Other)
  Sender: FDA-Public Use
  Company Number: CA-CONCORDIA PHARMACEUTICALS INC.-GSH201709-005379

PATIENT
  Age: 58 Year
  Sex: Female

DRUGS (9)
  1. LEFLUNOMIDE. [Suspect]
     Active Substance: LEFLUNOMIDE
     Indication: RHEUMATOID ARTHRITIS
     Route: 048
  2. RAMIPRIL. [Concomitant]
     Active Substance: RAMIPRIL
  3. ACETAMINOPHEN OXYCODONE HYDROCHLORIDE [Concomitant]
  4. METHOTREXATE. [Suspect]
     Active Substance: METHOTREXATE
     Route: 048
  5. SULFASALAZINE. [Suspect]
     Active Substance: SULFASALAZINE
     Indication: RHEUMATOID ARTHRITIS
     Route: 048
  6. ACETAMINOPHEN OXYCODONEHYDROCHLORIDE OXYCODONE TEREPHTHALATE [Concomitant]
  7. PLAQUENIL [Suspect]
     Active Substance: HYDROXYCHLOROQUINE SULFATE
     Indication: PRODUCT USED FOR UNKNOWN INDICATION
     Route: 048
  8. METHOTREXATE. [Suspect]
     Active Substance: METHOTREXATE
     Indication: RHEUMATOID ARTHRITIS
     Route: 065
  9. HUMIRA [Suspect]
     Active Substance: ADALIMUMAB
     Indication: RHEUMATOID ARTHRITIS
     Route: 058

REACTIONS (7)
  - Mobility decreased [Not Recovered/Not Resolved]
  - Joint arthroplasty [Unknown]
  - Pain [Not Recovered/Not Resolved]
  - Knee arthroplasty [Unknown]
  - Drug ineffective [Unknown]
  - Hand deformity [Not Recovered/Not Resolved]
  - Swelling [Not Recovered/Not Resolved]
